FAERS Safety Report 6681112-9 (Version None)
Quarter: 2010Q2

REPORT INFORMATION
  Report Type: 
  Country: None (occurrence: None)
  Receive Date: 20100414
  Receipt Date: 20100405
  Transmission Date: 20101027
  Serious: Yes (Other)
  Sender: FDA-Public Use
  Company Number: US-AMGEN-QUU392162

PATIENT
  Sex: Male
  Weight: 74 kg

DRUGS (20)
  1. ARANESP [Suspect]
     Indication: RENAL FAILURE CHRONIC
     Route: 058
     Dates: start: 20070811
  2. FUROSEMIDE [Concomitant]
  3. ASPIRIN [Concomitant]
     Route: 048
  4. CLONIDINE [Concomitant]
     Route: 062
  5. COREG [Concomitant]
     Route: 048
  6. FISH OIL [Concomitant]
     Route: 048
  7. HYDRALAZINE HYDROCHLORIDE [Concomitant]
     Route: 048
  8. IMDUR [Concomitant]
     Route: 048
  9. NOVOLOG [Concomitant]
     Route: 058
  10. LANTUS [Concomitant]
     Route: 058
  11. NOVOLIN N [Concomitant]
     Route: 058
  12. MAGNESIUM [Concomitant]
     Route: 048
  13. MYFORTIC [Concomitant]
  14. ZOFRAN [Concomitant]
  15. PREDNISOLONE [Concomitant]
     Route: 048
  16. PRENATAL [Concomitant]
  17. PROGRAF [Concomitant]
     Route: 048
  18. TESTOSTERONE [Concomitant]
     Route: 062
  19. TUMS [Concomitant]
     Route: 048
  20. ERGOCALCIFEROL [Concomitant]

REACTIONS (13)
  - CHOLELITHIASIS [None]
  - DIARRHOEA [None]
  - DIVERTICULITIS [None]
  - FATIGUE [None]
  - IRON DEFICIENCY ANAEMIA [None]
  - IRON OVERLOAD [None]
  - LUNG INFILTRATION [None]
  - NORMOCHROMIC NORMOCYTIC ANAEMIA [None]
  - OEDEMA PERIPHERAL [None]
  - RETICULOCYTE COUNT DECREASED [None]
  - SYNCOPE [None]
  - THERAPEUTIC RESPONSE DECREASED [None]
  - VOMITING [None]
